FAERS Safety Report 13197106 (Version 2)
Quarter: 2017Q1

REPORT INFORMATION
  Report Type: Spontaneous
  Country: DK (occurrence: DK)
  Receive Date: 20170208
  Receipt Date: 20170302
  Transmission Date: 20170428
  Serious: Yes (Other)
  Sender: FDA-Public Use
  Company Number: DK-SA-2017SA017085

PATIENT
  Age: 32 Year
  Sex: Female
  Weight: 68 kg

DRUGS (1)
  1. AUBAGIO [Suspect]
     Active Substance: TERIFLUNOMIDE
     Indication: MULTIPLE SCLEROSIS
     Dosage: STYRKE: 14 MG.?STOP DATE: AUG-SEP 2016
     Route: 048
     Dates: start: 20150226, end: 2016

REACTIONS (3)
  - Oedema [Unknown]
  - C-reactive protein increased [Unknown]
  - B-cell lymphoma [Not Recovered/Not Resolved]

NARRATIVE: CASE EVENT DATE: 20160830
